FAERS Safety Report 4935117-6 (Version None)
Quarter: 2006Q1

REPORT INFORMATION
  Report Type: 
  Country: None (occurrence: None)
  Receive Date: 20060306
  Receipt Date: 20060306
  Transmission Date: 20060701
  Serious: Yes (Hospitalization)
  Sender: FDA-Public Use
  Company Number: None

PATIENT
  Sex: Male
  Weight: 126.5536 kg

DRUGS (6)
  1. DOCETAXEL [Suspect]
     Indication: PANCREATIC CARCINOMA
     Dosage: 60MG/M2 IV Q21 DAYS
     Route: 042
     Dates: start: 20060131, end: 20060221
  2. GEFITINIB    250MG TABLET  ASTRA ZENECA [Suspect]
     Indication: PANCREATIC CARCINOMA
     Dosage: 250MG  PO  DAILY
     Route: 048
     Dates: start: 20060131, end: 20060301
  3. DIGOXIN [Concomitant]
  4. METOPROLOL [Concomitant]
  5. OMEPRAZOLE [Concomitant]
  6. MAGNESIUM [Concomitant]

REACTIONS (5)
  - DIZZINESS [None]
  - HYPOTENSION [None]
  - NEUTROPENIA [None]
  - SEPSIS [None]
  - SYNCOPE [None]
